FAERS Safety Report 12315541 (Version 1)
Quarter: 2016Q2

REPORT INFORMATION
  Report Type: Spontaneous
  Country: GB (occurrence: GB)
  Receive Date: 20160428
  Receipt Date: 20160428
  Transmission Date: 20160815
  Serious: Yes (Life-Threatening, Other)
  Sender: FDA-Public Use
  Company Number: GB-IGI LABORATORIES, INC.-1051174

PATIENT
  Age: 1 Day

DRUGS (1)
  1. ZINACEF [Suspect]
     Active Substance: CEFUROXIME SODIUM
     Indication: ANTIBIOTIC PROPHYLAXIS
     Route: 064
     Dates: start: 20151113, end: 20151113

REACTIONS (1)
  - Brain hypoxia [Recovering/Resolving]

NARRATIVE: CASE EVENT DATE: 20151113
